FAERS Safety Report 6992894-0 (Version None)
Quarter: 2010Q3

REPORT INFORMATION
  Report Type: 
  Country: None (occurrence: None)
  Receive Date: 20100916
  Receipt Date: 20100916
  Transmission Date: 20110219
  Serious: Yes (Hospitalization)
  Sender: FDA-Public Use
  Company Number: None

PATIENT
  Age: 66 Year
  Sex: Male
  Weight: 66.5 kg

DRUGS (12)
  1. VIDAZA [Suspect]
     Indication: LARYNGEAL CANCER
     Dosage: DAYS 1-4, 15-18 SQ  7 CYCLES
     Route: 058
     Dates: start: 20100208, end: 20100910
  2. TARCEVA [Suspect]
     Indication: LARYNGEAL CANCER
     Dosage: 150 MG ONCE DAILY PO 7 CYCLES
     Route: 048
     Dates: start: 20100208, end: 20100914
  3. COREG [Concomitant]
  4. LISINOPRIL [Concomitant]
  5. DIGOXIN [Concomitant]
  6. SPIRONOLACTONE [Concomitant]
  7. ROXICET [Concomitant]
  8. AZELASTINE HCL [Concomitant]
  9. VALIUM [Concomitant]
  10. FENTANYL-75 [Concomitant]
  11. ONDANSETRON [Concomitant]
  12. PROCHLORPERAZINE [Concomitant]

REACTIONS (6)
  - CONFUSIONAL STATE [None]
  - COUGH [None]
  - NEUTROPENIA [None]
  - PNEUMONIA [None]
  - PYREXIA [None]
  - SPUTUM INCREASED [None]
